FAERS Safety Report 21314738 (Version 1)
Quarter: 2022Q3

REPORT INFORMATION
  Report Type: Spontaneous
  Country: US (occurrence: None)
  Receive Date: 20220909
  Receipt Date: 20220909
  Transmission Date: 20221027
  Serious: No
  Sender: FDA-Public Use
  Company Number: US-ARIS GLOBAL-202111-1980

PATIENT
  Sex: Female
  Weight: 86.260 kg

DRUGS (14)
  1. OXERVATE [Suspect]
     Active Substance: CENEGERMIN-BKBJ
     Indication: Neurotrophic keratopathy
     Route: 047
     Dates: start: 20210908
  2. TYLENOL [Concomitant]
     Active Substance: ACETAMINOPHEN
  3. FUROSEMIDE [Concomitant]
     Active Substance: FUROSEMIDE
  4. ATORVASTATIN CALCIUM [Concomitant]
     Active Substance: ATORVASTATIN CALCIUM
  5. GLIPIZIDE XL [Concomitant]
     Active Substance: GLIPIZIDE
  6. HYDROCHLOROTHIAZIDE [Concomitant]
     Active Substance: HYDROCHLOROTHIAZIDE
  7. CYCLOBENZAPRINE HYDROCHLORIDE [Concomitant]
     Active Substance: CYCLOBENZAPRINE HYDROCHLORIDE
  8. TRADJENTA [Concomitant]
     Active Substance: LINAGLIPTIN
  9. MELOXICAM [Concomitant]
     Active Substance: MELOXICAM
  10. LISINOPRIL [Concomitant]
     Active Substance: LISINOPRIL
  11. METFORMIN HYDROCHLORIDE [Concomitant]
     Active Substance: METFORMIN HYDROCHLORIDE
  12. AFREZZA [Concomitant]
     Active Substance: INSULIN HUMAN
     Dosage: 4-8-12 (60) INHALATORY CARTRIDGE
  13. NOVOLOG [Concomitant]
     Active Substance: INSULIN ASPART
  14. TRESIBA [Concomitant]
     Active Substance: INSULIN DEGLUDEC

REACTIONS (4)
  - Eye irritation [Unknown]
  - Eye pain [Unknown]
  - Therapy interrupted [Unknown]
  - Drug ineffective [Unknown]
